FAERS Safety Report 7749972-8 (Version None)
Quarter: 2011Q3

REPORT INFORMATION
  Report Type: 
  Country: None (occurrence: None)
  Receive Date: 20110912
  Receipt Date: 20110908
  Transmission Date: 20111222
  Serious: Yes (Death, Other)
  Sender: FDA-Public Use
  Company Number: 2011SP013905

PATIENT
  Age: 34 Year
  Sex: Female
  Weight: 87.9978 kg

DRUGS (3)
  1. NUVARING [Suspect]
     Indication: CONTRACEPTION
     Dates: start: 20080901, end: 20091010
  2. NUVARING [Suspect]
     Indication: CONTRACEPTION
     Dates: start: 20071101, end: 20080101
  3. CINNAMON TABLE [Concomitant]

REACTIONS (20)
  - PULMONARY EMBOLISM [None]
  - HYPERTENSION [None]
  - RESPIRATORY TRACT INFECTION [None]
  - DEEP VEIN THROMBOSIS [None]
  - PULMONARY CONGESTION [None]
  - GOITRE [None]
  - PULSELESS ELECTRICAL ACTIVITY [None]
  - DERMATITIS [None]
  - ABDOMINAL PAIN [None]
  - PELVIC MASS [None]
  - UROGENITAL TRICHOMONIASIS [None]
  - MATERNAL EXPOSURE BEFORE PREGNANCY [None]
  - CARDIAC ARREST [None]
  - PULSE ABSENT [None]
  - PELVIC PAIN [None]
  - CARDIO-RESPIRATORY ARREST [None]
  - HYPERCOAGULATION [None]
  - OVULATION PAIN [None]
  - VISCERAL CONGESTION [None]
  - ABORTION INDUCED [None]
